FAERS Safety Report 13644576 (Version 1)
Quarter: 2017Q2

REPORT INFORMATION
  Report Type: Spontaneous
  Country: US (occurrence: US)
  Receive Date: 20170612
  Receipt Date: 20170612
  Transmission Date: 20170830
  Serious: Yes (Other)
  Sender: FDA-Public Use
  Company Number: US-ROCHE-1275327

PATIENT
  Age: 63 Year
  Sex: Male

DRUGS (3)
  1. XELODA [Suspect]
     Active Substance: CAPECITABINE
     Indication: LIP AND/OR ORAL CAVITY CANCER
     Route: 048
  2. HYDROCODONE HCL [Concomitant]
     Indication: PAIN
  3. XELODA [Suspect]
     Active Substance: CAPECITABINE
     Indication: HEAD AND NECK CANCER
     Route: 048
     Dates: start: 20130905, end: 20130916

REACTIONS (3)
  - Dysphagia [Unknown]
  - Neoplasm progression [Unknown]
  - Dysphagia [Unknown]

NARRATIVE: CASE EVENT DATE: 20130905
